FAERS Safety Report 7642518-4 (Version None)
Quarter: 2011Q3

REPORT INFORMATION
  Report Type: 
  Country: None (occurrence: None)
  Receive Date: 20110728
  Receipt Date: 20110718
  Transmission Date: 20111222
  Serious: Yes (Other)
  Sender: FDA-Public Use
  Company Number: US-TYCO HEALTHCARE/MALLINCKRODT-T201101413

PATIENT
  Sex: Male

DRUGS (4)
  1. FENTANYL-100 [Suspect]
     Dosage: 25 UG/HR, 1 PATCH EVERY 3 DAYS,  PRIOR TO JUN2011
  2. PRILOSEC [Concomitant]
     Indication: ABDOMINAL DISCOMFORT
     Dosage: 1 TAB QD
     Dates: end: 20110718
  3. XANAX [Concomitant]
     Indication: SLEEP DISORDER
  4. FENTANYL-100 [Suspect]
     Indication: PAIN
     Dosage: 50 UG/HR, 1 PATCH EVERY 48 HOURS
     Route: 062
     Dates: start: 20110601

REACTIONS (5)
  - WITHDRAWAL SYNDROME [None]
  - FEELING OF DESPAIR [None]
  - DRUG INEFFECTIVE [None]
  - CHEST DISCOMFORT [None]
  - INTENTIONAL DRUG MISUSE [None]
